FAERS Safety Report 6490768-5 (Version None)
Quarter: 2009Q4

REPORT INFORMATION
  Report Type: 
  Country: None (occurrence: None)
  Receive Date: 20091211
  Receipt Date: 20091204
  Transmission Date: 20100525
  Serious: Yes (Death)
  Sender: FDA-Public Use
  Company Number: US-BRISTOL-MYERS SQUIBB COMPANY-14835060

PATIENT
  Age: 66 Year
  Sex: Male
  Weight: 109 kg

DRUGS (14)
  1. ORENCIA [Suspect]
     Indication: RHEUMATOID ARTHRITIS
     Route: 042
     Dates: start: 20080201
  2. KLOR-CON [Concomitant]
  3. FUROSEMIDE [Concomitant]
  4. PREDNISONE TAB [Concomitant]
     Dosage: BETWEEN 1 AND 4 TABS,QD
  5. METHOTREXATE [Concomitant]
  6. PROVENTIL [Concomitant]
  7. SPIRIVA [Concomitant]
  8. ADVAIR DISKUS 100/50 [Concomitant]
  9. LYRICA [Concomitant]
  10. SORBITOL [Concomitant]
     Dosage: 1DOSAGEFORM=5-10MG
  11. HYDROCODONE [Concomitant]
     Dosage: 1DOSAGEFORM=10/500,PRN
  12. MS CONTIN [Concomitant]
  13. LISINOPRIL [Concomitant]
  14. METOPROLOL [Concomitant]

REACTIONS (2)
  - PNEUMONIA [None]
  - SEPSIS [None]
